FAERS Safety Report 7105428-7 (Version None)
Quarter: 2010Q4

REPORT INFORMATION
  Report Type: 
  Country: None (occurrence: None)
  Receive Date: 20101110
  Receipt Date: 20101025
  Transmission Date: 20110411
  Serious: Yes (Hospitalization)
  Sender: FDA-Public Use
  Company Number: JPI-P-012718

PATIENT
  Age: 46 Year
  Sex: Female
  Weight: 81.6475 kg

DRUGS (6)
  1. XYREM [Suspect]
     Indication: NARCOLEPSY
     Dosage: 2 IN 1 D, ORAL, 3.25 GM FIRST DOSE/2.75 GM SECOND DOSE), ORAL
     Route: 048
     Dates: start: 20080101
  2. DEXTROAMPHETAMINE AND AMPHETAMINE [Concomitant]
  3. MODAFINIL [Concomitant]
  4. CETIRIZINE [Concomitant]
  5. SERTRALINE HYDROCHLORIDE [Concomitant]
  6. LEVOTHYROXINE SODIUM [Concomitant]

REACTIONS (1)
  - NEPHROLITHIASIS [None]
